FAERS Safety Report 6913669-4 (Version None)
Quarter: 2010Q3

REPORT INFORMATION
  Report Type: 
  Country: None (occurrence: None)
  Receive Date: 20100809
  Receipt Date: 20100730
  Transmission Date: 20110219
  Serious: Yes (Hospitalization, Other)
  Sender: FDA-Public Use
  Company Number: JP-JNJFOC-20100801058

PATIENT
  Sex: Female

DRUGS (11)
  1. TOPIRAMATE [Suspect]
     Indication: EPILEPSY
     Route: 048
  2. TOPIRAMATE [Suspect]
     Route: 048
  3. TOPIRAMATE [Suspect]
     Route: 048
  4. TOPIRAMATE [Suspect]
     Route: 048
  5. TOPIRAMATE [Suspect]
     Route: 048
  6. TOPIRAMATE [Suspect]
     Route: 048
  7. HYDANTOL [Interacting]
     Indication: EPILEPSY
     Route: 048
  8. HYDANTOL [Interacting]
     Route: 048
  9. HYDANTOL [Interacting]
     Route: 048
  10. HYDANTOL [Interacting]
     Route: 048
  11. HYDANTOL [Interacting]
     Route: 048

REACTIONS (2)
  - DRUG INTERACTION [None]
  - STATUS EPILEPTICUS [None]
